FAERS Safety Report 5378515-1 (Version None)
Quarter: 2007Q3

REPORT INFORMATION
  Report Type: 
  Country: None (occurrence: None)
  Receive Date: 20070702
  Receipt Date: 20070625
  Transmission Date: 20080115
  Serious: Yes (Death, Life-Threatening)
  Sender: FDA-Public Use
  Company Number: 2007SP012715

PATIENT

DRUGS (2)
  1. TEMOZOLOMIDE [Suspect]
     Indication: METASTASES TO CENTRAL NERVOUS SYSTEM
     Dosage: 150 MG/M2; PO
     Route: 048
  2. LOMUSTINE (LOMUSTINE) [Suspect]
     Indication: METASTASES TO CENTRAL NERVOUS SYSTEM
     Dosage: 60 MG/M2

REACTIONS (9)
  - ASTHENIA [None]
  - DRUG TOXICITY [None]
  - DYSPNOEA [None]
  - HEADACHE [None]
  - LEUKOPENIA [None]
  - NEUTROPENIA [None]
  - PNEUMONIA [None]
  - SEPSIS [None]
  - THROMBOCYTOPENIA [None]
